FAERS Safety Report 23924236 (Version 1)
Quarter: 2024Q2

REPORT INFORMATION
  Report Type: Spontaneous
  Country: US (occurrence: US)
  Receive Date: 20240531
  Receipt Date: 20240531
  Transmission Date: 20240716
  Serious: No
  Sender: FDA-Public Use
  Company Number: US-STRIDES ARCOLAB LIMITED-2024SP004131

PATIENT
  Age: 61 Year
  Sex: Male

DRUGS (6)
  1. VANCOMYCIN [Suspect]
     Active Substance: VANCOMYCIN
     Indication: Corynebacterium infection
     Dosage: 1 GRAM, EVERY 12 HRS (FOR A TROUGH GOAL 15-20)
     Route: 065
  2. METRONIDAZOLE [Suspect]
     Active Substance: METRONIDAZOLE
     Indication: Corynebacterium infection
     Dosage: 500 MILLIGRAM, TID
     Route: 065
  3. CIPROFLOXACIN [Concomitant]
     Active Substance: CIPROFLOXACIN
     Indication: Skin ulcer
     Dosage: 500 MILLIGRAM, BID
     Route: 048
  4. AMOXICILLIN\CLAVULANIC ACID [Concomitant]
     Active Substance: AMOXICILLIN\CLAVULANIC ACID
     Indication: Skin ulcer
     Dosage: UNK, BID (875-125 MILLIGRAM)
     Route: 065
  5. PIPERACILLIN AND TAZOBACTAM [Concomitant]
     Active Substance: PIPERACILLIN SODIUM\TAZOBACTAM SODIUM
     Indication: Corynebacterium infection
     Dosage: UNK, EVERY 6 HRS (4.5)
     Route: 065
  6. CEFTRIAXONE [Concomitant]
     Active Substance: CEFTRIAXONE\CEFTRIAXONE SODIUM
     Indication: Corynebacterium infection
     Dosage: 2 GRAM, QD
     Route: 065

REACTIONS (1)
  - Off label use [Unknown]
